FAERS Safety Report 9398128 (Version 1)
Quarter: 2013Q3

REPORT INFORMATION
  Report Type: Spontaneous
  Country: US (occurrence: US)
  Receive Date: 20130712
  Receipt Date: 20130712
  Transmission Date: 20140515
  Serious: No
  Sender: FDA-Public Use
  Company Number: US-GLAXOSMITHKLINE-A0986973A

PATIENT
  Age: 70 Year
  Sex: Female

DRUGS (12)
  1. FLOVENT [Suspect]
     Indication: ASTHMA
     Dosage: 2PUFF TWICE PER DAY
     Route: 055
     Dates: start: 2000
  2. TESSALON PEARLS [Concomitant]
  3. NEBULIZER [Concomitant]
  4. VITAMIN C [Concomitant]
  5. BENICAR [Concomitant]
  6. DIATALIC [Concomitant]
  7. LIPITOR [Concomitant]
  8. PROTONIX [Concomitant]
  9. MULTIVITAMIN [Concomitant]
  10. VITAMIN D [Concomitant]
  11. GLUCOSAMINE CHONDRITIN [Concomitant]
  12. VITAMIN E [Concomitant]

REACTIONS (5)
  - Cough [Recovered/Resolved]
  - Dyspnoea [Unknown]
  - Ill-defined disorder [Unknown]
  - Product quality issue [Unknown]
  - Drug ineffective [Unknown]
